FAERS Safety Report 19977113 (Version 1)
Quarter: 2021Q4

REPORT INFORMATION
  Report Type: Spontaneous
  Country: FR (occurrence: FR)
  Receive Date: 20211020
  Receipt Date: 20211020
  Transmission Date: 20220303
  Serious: Yes (Hospitalization, Congenital Anomaly, Other)
  Sender: FDA-Public Use
  Company Number: FR-ABBVIE-21K-056-4125637-00

PATIENT
  Sex: Male
  Weight: 3.64 kg

DRUGS (1)
  1. VALPROATE SODIUM [Suspect]
     Active Substance: VALPROATE SODIUM
     Indication: Maternal exposure timing unspecified
     Route: 064

REACTIONS (55)
  - Bronchiolitis [Unknown]
  - Cough [Unknown]
  - Severe acute respiratory syndrome [Unknown]
  - Dyspnoea [Unknown]
  - Nasal congestion [Unknown]
  - Otitis media chronic [Unknown]
  - Amblyopia congenital [Unknown]
  - Congenital myopia [Unknown]
  - Visual impairment [Unknown]
  - Cyanosis neonatal [Unknown]
  - Anisometropia [Unknown]
  - Retinopathy of prematurity [Unknown]
  - Brachymetatarsia [Unknown]
  - Talipes [Unknown]
  - Dysmorphism [Unknown]
  - Psychomotor retardation [Unknown]
  - Learning disability [Unknown]
  - Dysgraphia [Unknown]
  - Loss of personal independence in daily activities [Unknown]
  - Visuospatial deficit [Unknown]
  - Executive dysfunction [Unknown]
  - Memory impairment [Unknown]
  - Fatigue [Unknown]
  - Disinhibition [Unknown]
  - Speech disorder [Unknown]
  - Hand-eye coordination impaired [Unknown]
  - Fine motor skill dysfunction [Unknown]
  - Intellectual disability [Unknown]
  - Dyspraxia [Unknown]
  - Impaired reasoning [Unknown]
  - Behaviour disorder [Unknown]
  - Speech disorder developmental [Unknown]
  - Gait disturbance [Unknown]
  - Balance disorder [Unknown]
  - Deafness neurosensory [Unknown]
  - Hypoacusis [Unknown]
  - Phimosis [Unknown]
  - Knee deformity [Unknown]
  - Echolalia [Unknown]
  - Tic [Unknown]
  - Tic [Unknown]
  - Electroencephalogram abnormal [Unknown]
  - Intellectual disability [Unknown]
  - Visuospatial deficit [Unknown]
  - Disinhibition [Unknown]
  - Gastrooesophageal reflux disease [Unknown]
  - Brachymetatarsia [Unknown]
  - Rhinitis [Unknown]
  - Vomiting [Unknown]
  - Neurodevelopmental disorder [Unknown]
  - Disturbance in attention [Unknown]
  - Learning disorder [Unknown]
  - Developmental delay [Unknown]
  - Disturbance in attention [Unknown]
  - Foetal exposure during pregnancy [Unknown]
